FAERS Safety Report 10021329 (Version 1)
Quarter: 2014Q1

REPORT INFORMATION
  Report Type: Spontaneous
  Country: US (occurrence: None)
  Receive Date: 20140318
  Receipt Date: 20140318
  Transmission Date: 20141002
  Serious: No
  Sender: FDA-Public Use
  Company Number: None

PATIENT
  Age: 27 Year
  Sex: Female
  Weight: 53.98 kg

DRUGS (1)
  1. SKYLA [Suspect]
     Dates: start: 20130603

REACTIONS (4)
  - Vaginal haemorrhage [None]
  - Abdominal pain [None]
  - Coital bleeding [None]
  - Dyspareunia [None]
